FAERS Safety Report 13720480 (Version 4)
Quarter: 2020Q2

REPORT INFORMATION
  Report Type: Report from Study
  Country: TW (occurrence: TW)
  Receive Date: 20170706
  Receipt Date: 20200624
  Transmission Date: 20200713
  Serious: Yes (Hospitalization)
  Sender: FDA-Public Use
  Company Number: TW-AMGEN-TWNSL2017099628

PATIENT
  Age: 79 Year
  Sex: Female

DRUGS (1)
  1. PROLIA [Suspect]
     Active Substance: DENOSUMAB
     Indication: PRODUCT USED FOR UNKNOWN INDICATION
     Dosage: 60 MILLIGRAM, Q6MO
     Route: 065
     Dates: start: 20170508

REACTIONS (8)
  - Pain [Not Recovered/Not Resolved]
  - Spinal cord abscess [Unknown]
  - Pelvic abscess [Unknown]
  - Diarrhoea [Recovered/Resolved]
  - Bacterial infection [Unknown]
  - White blood cell count increased [Unknown]
  - Intervertebral disc degeneration [Recovering/Resolving]
  - Muscle spasms [Unknown]

NARRATIVE: CASE EVENT DATE: 201705
